FAERS Safety Report 18004910 (Version 1)
Quarter: 2020Q3

REPORT INFORMATION
  Report Type: Spontaneous
  Country: US (occurrence: US)
  Receive Date: 20200709
  Receipt Date: 20200709
  Transmission Date: 20201103
  Serious: No
  Sender: FDA-Public Use
  Company Number: US-LANNETT COMPANY, INC.-US-2020LAN000068

PATIENT
  Age: 49 Year
  Sex: Female

DRUGS (3)
  1. PAROXETINE HYDROCHLORIDE. [Suspect]
     Active Substance: PAROXETINE HYDROCHLORIDE
     Indication: VAGUS NERVE DISORDER
     Dosage: 1 DOSE, UNK
     Route: 065
     Dates: start: 2014, end: 2014
  2. PAROXETINE HYDROCHLORIDE. [Suspect]
     Active Substance: PAROXETINE HYDROCHLORIDE
     Indication: DYSPNOEA
     Dosage: 12.5 MG, QD
     Route: 048
     Dates: start: 20200117, end: 20200205
  3. CLONAZEPAM. [Concomitant]
     Active Substance: CLONAZEPAM
     Indication: ANXIETY
     Dosage: 0.5 MG, QID
     Route: 048

REACTIONS (2)
  - Drug ineffective for unapproved indication [Unknown]
  - Dyspnoea [Recovered/Resolved]

NARRATIVE: CASE EVENT DATE: 20200117
